FAERS Safety Report 4655076-3 (Version None)
Quarter: 2005Q2

REPORT INFORMATION
  Report Type: 
  Country: None (occurrence: None)
  Receive Date: 20050503
  Receipt Date: 20050316
  Transmission Date: 20051028
  Serious: Yes (Hospitalization)
  Sender: FDA-Public Use
  Company Number: 2005SE00173

PATIENT
  Age: 58 Year
  Sex: Female

DRUGS (3)
  1. ROSUVASTATIN [Suspect]
     Indication: HYPERCHOLESTEROLAEMIA
     Dates: start: 20041205, end: 20041220
  2. METFORMINE ^MERCK^ [Concomitant]
  3. GLIMEPIRIDE [Concomitant]

REACTIONS (8)
  - ANGIOSCLEROSIS [None]
  - BLOOD PRESSURE INCREASED [None]
  - CARDIOMEGALY [None]
  - CAROTID ARTERY DISEASE [None]
  - DYSPNOEA [None]
  - FLATULENCE [None]
  - NEPHROTIC SYNDROME [None]
  - RHABDOMYOLYSIS [None]
